FAERS Safety Report 25202034 (Version 1)
Quarter: 2025Q2

REPORT INFORMATION
  Report Type: Spontaneous
  Country: CH (occurrence: CH)
  Receive Date: 20250416
  Receipt Date: 20250416
  Transmission Date: 20250716
  Serious: Yes (Hospitalization)
  Sender: SANDOZ
  Company Number: None

PATIENT
  Age: 69 Year
  Sex: Male

DRUGS (16)
  1. ATORVASTATIN [Suspect]
     Active Substance: ATORVASTATIN
     Indication: Coronary artery disease
     Route: 048
     Dates: end: 20230825
  2. AMIKACIN [Concomitant]
     Active Substance: AMIKACIN
     Route: 041
     Dates: end: 20230923
  3. AMIKACIN [Concomitant]
     Active Substance: AMIKACIN
     Indication: Pulmonary tuberculosis
     Route: 065
     Dates: start: 20230916, end: 20230923
  4. ASPIRIN [Concomitant]
     Active Substance: ASPIRIN
     Route: 048
     Dates: start: 20230925
  5. ASPIRIN [Concomitant]
     Active Substance: ASPIRIN
     Indication: Coronary artery disease
     Route: 048
     Dates: end: 20230917
  6. CANDESARTAN [Concomitant]
     Active Substance: CANDESARTAN
     Indication: Product used for unknown indication
     Route: 048
     Dates: end: 20230908
  7. ETHAMBUTOL [Concomitant]
     Active Substance: ETHAMBUTOL HYDROCHLORIDE
     Indication: Pulmonary tuberculosis
     Route: 065
     Dates: end: 20230916
  8. DAPAGLIFLOZIN [Concomitant]
     Active Substance: DAPAGLIFLOZIN
     Indication: Type 2 diabetes mellitus
     Route: 048
     Dates: end: 20230913
  9. Harnstoff [Concomitant]
     Indication: Inappropriate antidiuretic hormone secretion
     Route: 048
     Dates: end: 20230913
  10. ISONIAZID [Concomitant]
     Active Substance: ISONIAZID
     Indication: Pulmonary tuberculosis
     Route: 048
  11. MOXIFLOXACIN [Concomitant]
     Active Substance: MOXIFLOXACIN
     Indication: Pulmonary tuberculosis
     Route: 041
     Dates: start: 20230916, end: 20230922
  12. MOXIFLOXACIN [Concomitant]
     Active Substance: MOXIFLOXACIN
     Route: 041
     Dates: start: 20230922, end: 20230922
  13. PLAVIX [Concomitant]
     Active Substance: CLOPIDOGREL BISULFATE
     Indication: Coronary artery disease
     Route: 048
     Dates: start: 20230917, end: 20230925
  14. VITAMIN B6 [Concomitant]
     Active Substance: PYRIDOXINE HYDROCHLORIDE
     Indication: Product used for unknown indication
     Route: 048
  15. RIFAMPIN [Interacting]
     Active Substance: RIFAMPIN
     Indication: Pulmonary tuberculosis
     Route: 041
     Dates: start: 20230912, end: 20230914
  16. RIMSTAR [Interacting]
     Active Substance: ETHAMBUTOL\ISONIAZID\PYRAZINAMIDE\RIFAMYCIN
     Indication: Pulmonary tuberculosis
     Route: 048
     Dates: start: 20230818, end: 20230825

REACTIONS (4)
  - Liver disorder [Recovered/Resolved]
  - Pneumonitis [Recovered/Resolved]
  - Drug hypersensitivity [Recovered/Resolved]
  - Drug interaction [Recovered/Resolved]
